FAERS Safety Report 21313853 (Version 1)
Quarter: 2022Q3

REPORT INFORMATION
  Report Type: Spontaneous
  Country: US (occurrence: US)
  Receive Date: 20220909
  Receipt Date: 20220909
  Transmission Date: 20221026
  Serious: Yes (Disabling, Other)
  Sender: FDA-Public Use
  Company Number: US-TEVA-2022-US-2071583

PATIENT
  Age: 34 Year
  Sex: Female

DRUGS (23)
  1. DOCETAXEL [Suspect]
     Active Substance: DOCETAXEL
     Indication: Breast cancer stage II
     Dosage: 6 CYCLES EVERY 3 WEEKS, DOSE: 145 MG, 130 MG, 115 MG
     Route: 042
     Dates: start: 20140207, end: 20140529
  2. DOCETAXEL [Suspect]
     Active Substance: DOCETAXEL
     Dosage: 6 CYCLES EVERY 3 WEEKS, DOSE: 145 MG, 130 MG, 115 MG
     Route: 042
     Dates: start: 20140207, end: 20140529
  3. DOCETAXEL [Suspect]
     Active Substance: DOCETAXEL
     Indication: Breast cancer stage II
     Dosage: 6 CYCLES EVERY 3 WEEKS, DOSE: 145 MG, 130 MG, 115 MG
     Route: 042
     Dates: start: 20140207, end: 20140529
  4. DOCETAXEL [Suspect]
     Active Substance: DOCETAXEL
     Dosage: 6 CYCLES EVERY 3 WEEKS, DOSE: 145 MG, 130 MG, 115 MG
     Route: 042
     Dates: start: 20140207, end: 20140529
  5. DOCETAXEL [Suspect]
     Active Substance: DOCETAXEL
     Indication: Breast cancer stage II
     Dosage: 6 CYCLES EVERY 3 WEEKS, DOSE: 145 MG, 130 MG, 115 MG (20 MG VIAL)
     Route: 042
     Dates: start: 20140207, end: 20140529
  6. DOCETAXEL [Suspect]
     Active Substance: DOCETAXEL
     Dosage: 6 CYCLES EVERY 3 WEEKS, DOSE: 145 MG, 130 MG, 115 MG (80 MG VIAL)
     Route: 042
     Dates: start: 20140207, end: 20140529
  7. DOCETAXEL [Suspect]
     Active Substance: DOCETAXEL
     Indication: Breast cancer stage II
     Dosage: 6 CYCLES EVERY 3 WEEKS, DOSE: 145 MG, 130 MG, 115 MG
     Route: 042
     Dates: start: 20140207, end: 20140529
  8. DOCETAXEL [Suspect]
     Active Substance: DOCETAXEL
     Dosage: 6 CYCLES EVERY 3 WEEKS, DOSE: 145 MG, 130 MG, 115 MG
     Route: 042
     Dates: start: 20140207, end: 20140529
  9. DOCETAXEL [Suspect]
     Active Substance: DOCETAXEL
     Indication: Breast cancer stage II
     Dosage: 6 CYCLES EVERY 3 WEEKS, DOSE: 145 MG, 130 MG, 115 MG
     Route: 042
     Dates: start: 20140207, end: 20140529
  10. DOCETAXEL [Suspect]
     Active Substance: DOCETAXEL
     Dosage: 6 CYCLES EVERY 3 WEEKS, DOSE: 145 MG, 130 MG, 115 MG
     Route: 042
     Dates: start: 20140207, end: 20140529
  11. ADRIAMYCIN [Suspect]
     Active Substance: DOXORUBICIN HYDROCHLORIDE
     Indication: Breast cancer stage II
     Dosage: 6 CYCLES EVERY 3 WEEKS , DOSE: 95 MG, 85 MG, 80 MG
     Route: 042
     Dates: start: 20140207, end: 20140529
  12. CYTOXAN [Suspect]
     Active Substance: CYCLOPHOSPHAMIDE
     Indication: Breast cancer stage II
     Dosage: 6 CYCLES, EVERY THREE WEEKS  DOSE: 950 MG, 855 MG, 780 MG
     Route: 042
     Dates: start: 20140207, end: 20140529
  13. PALONOSETRON [Concomitant]
     Active Substance: PALONOSETRON
     Indication: Chemotherapy side effect prophylaxis
     Dosage: DOSE: 0.25 MG
     Route: 042
     Dates: start: 20140207, end: 20140529
  14. DEXAMETHASONE [Concomitant]
     Active Substance: DEXAMETHASONE
     Indication: Chemotherapy side effect prophylaxis
     Dosage: DOSE 20 MG
     Route: 042
     Dates: start: 20140207, end: 20140529
  15. DIPHENHYDRAMINE [Concomitant]
     Active Substance: DIPHENHYDRAMINE
     Indication: Chemotherapy side effect prophylaxis
     Dosage: DOSE: 25 MG
     Route: 042
     Dates: start: 20140207, end: 20140529
  16. FAMOTIDINE [Concomitant]
     Active Substance: FAMOTIDINE
     Indication: Chemotherapy side effect prophylaxis
     Dosage: DOSE: 20 MG
     Route: 042
     Dates: start: 20140207, end: 20140529
  17. FOSAPREPITANT DIMEGLUMINE [Concomitant]
     Active Substance: FOSAPREPITANT DIMEGLUMINE
     Indication: Chemotherapy side effect prophylaxis
     Dosage: DOSE: 150 MG
     Route: 042
     Dates: start: 20140207, end: 20140529
  18. SODIUM CHLORIDE [Concomitant]
     Active Substance: SODIUM CHLORIDE
     Indication: Product used for unknown indication
     Dosage: 150 ML
     Route: 042
     Dates: start: 20140207, end: 20140529
  19. LORATADINE [Concomitant]
     Active Substance: LORATADINE
     Indication: Chemotherapy side effect prophylaxis
     Dosage: DOSE: 10 MG
     Route: 048
     Dates: start: 20140208, end: 20140530
  20. PEGFILGRASTIM [Concomitant]
     Active Substance: PEGFILGRASTIM
     Indication: Product used for unknown indication
     Dosage: DOSE: 6 MG
     Route: 058
     Dates: start: 20140208, end: 20140530
  21. VITAMIN D3 [Concomitant]
     Active Substance: CHOLECALCIFEROL
     Indication: Product used for unknown indication
     Dosage: 5000 IU (INTERNATIONAL UNIT) DAILY;
     Route: 048
  22. MAGNESIUM OXIDE [Concomitant]
     Active Substance: MAGNESIUM OXIDE
     Indication: Product used for unknown indication
     Dosage: 800 MILLIGRAM DAILY; 400 MG 2 TIMES A DAY
     Route: 048
  23. Epamax [Concomitant]
     Indication: Routine health maintenance
     Dosage: 0-2 2 TIMES A DAY
     Route: 048

REACTIONS (15)
  - Alopecia areata [Not Recovered/Not Resolved]
  - Madarosis [Not Recovered/Not Resolved]
  - Neutropenia [Unknown]
  - Leukopenia [Unknown]
  - Hair texture abnormal [Not Recovered/Not Resolved]
  - Hair colour changes [Not Recovered/Not Resolved]
  - Hypomagnesaemia [Recovered/Resolved]
  - Fatigue [Not Recovered/Not Resolved]
  - Hot flush [Unknown]
  - Night sweats [Unknown]
  - Amenorrhoea [Unknown]
  - Peripheral swelling [Recovered/Resolved]
  - Joint swelling [Recovered/Resolved]
  - Abnormal weight gain [Unknown]
  - Nail discolouration [Unknown]

NARRATIVE: CASE EVENT DATE: 20140101
